FAERS Safety Report 5022498-0 (Version None)
Quarter: 2006Q2

REPORT INFORMATION
  Report Type: 
  Country: None (occurrence: None)
  Receive Date: 20060605
  Receipt Date: 20060523
  Transmission Date: 20061013
  Serious: Yes (Other)
  Sender: FDA-Public Use
  Company Number: 29262

PATIENT
  Age: 80 Year
  Sex: Female

DRUGS (3)
  1. DISCOTRINE (GLYCERYL TRINITRATE) [Suspect]
     Indication: ANGINA PECTORIS
     Dosage: 5 MG (5 MG, 1 IN 1 DAY (S) TRANSDERMAL
     Route: 062
     Dates: start: 19990101
  2. BISOPROLOL FUMARATE [Suspect]
     Dosage: ORAL  SINCE MANY YEARS
  3. TANGANIL (ACETYLLEUCINE) [Suspect]
     Dosage: (2 OR 3 TIMES  PER YEAR) ORAL
     Route: 048

REACTIONS (3)
  - ANGIONEUROTIC OEDEMA [None]
  - APPLICATION SITE ERYTHEMA [None]
  - APPLICATION SITE PRURITUS [None]
